FAERS Safety Report 7312647-3 (Version None)
Quarter: 2011Q1

REPORT INFORMATION
  Report Type: 
  Country: None (occurrence: None)
  Receive Date: 20110224
  Receipt Date: 20101115
  Transmission Date: 20110831
  Serious: No
  Sender: FDA-Public Use
  Company Number: US-MYLANLABS-2010S1021008

PATIENT
  Age: 62 Year
  Sex: Female

DRUGS (4)
  1. LANSOPRAZOLE [Suspect]
     Indication: GASTROOESOPHAGEAL REFLUX DISEASE
     Route: 048
     Dates: start: 20090101, end: 20101113
  2. LIPITOR [Concomitant]
  3. LANSOPRAZOLE [Suspect]
     Route: 048
     Dates: start: 20090101, end: 20101113
  4. SYNTHROID [Concomitant]

REACTIONS (3)
  - REACTION TO DRUG EXCIPIENTS [None]
  - PALPITATIONS [None]
  - HEART RATE INCREASED [None]
